FAERS Safety Report 8005046-2 (Version None)
Quarter: 2011Q4

REPORT INFORMATION
  Report Type: 
  Country: None (occurrence: None)
  Receive Date: 20111220
  Receipt Date: 20111209
  Transmission Date: 20120403
  Serious: Yes (Hospitalization)
  Sender: FDA-Public Use
  Company Number: DSA_48398_2011

PATIENT
  Sex: Male

DRUGS (15)
  1. SEROQUEL [Concomitant]
  2. EFFEXOR [Concomitant]
  3. VENLAFAXINE [Concomitant]
  4. LAMICTAL [Suspect]
     Indication: DEPRESSION
     Dosage: 25 MG DAILY, 50 MG DAILY, 75 MG DAILY, 100 MG DAILY, 150 MG DAILY, 200 MG DAILY, 250 MG DAILY, 50 MG
     Dates: start: 20111002, end: 20110101
  5. LAMICTAL [Suspect]
     Indication: DEPRESSION
     Dosage: 25 MG DAILY, 50 MG DAILY, 75 MG DAILY, 100 MG DAILY, 150 MG DAILY, 200 MG DAILY, 250 MG DAILY, 50 MG
     Dates: start: 20110101
  6. LAMICTAL [Suspect]
     Indication: DEPRESSION
     Dosage: 25 MG DAILY, 50 MG DAILY, 75 MG DAILY, 100 MG DAILY, 150 MG DAILY, 200 MG DAILY, 250 MG DAILY, 50 MG
     Dates: start: 20110918, end: 20110924
  7. LAMICTAL [Suspect]
     Indication: DEPRESSION
     Dosage: 25 MG DAILY, 50 MG DAILY, 75 MG DAILY, 100 MG DAILY, 150 MG DAILY, 200 MG DAILY, 250 MG DAILY, 50 MG
     Dates: start: 20110911, end: 20110917
  8. LAMICTAL [Suspect]
     Indication: DEPRESSION
     Dosage: 25 MG DAILY, 50 MG DAILY, 75 MG DAILY, 100 MG DAILY, 150 MG DAILY, 200 MG DAILY, 250 MG DAILY, 50 MG
     Dates: start: 20110828, end: 20110910
  9. LAMICTAL [Suspect]
     Indication: DEPRESSION
     Dosage: 25 MG DAILY, 50 MG DAILY, 75 MG DAILY, 100 MG DAILY, 150 MG DAILY, 200 MG DAILY, 250 MG DAILY, 50 MG
     Dates: start: 20110925, end: 20111001
  10. LAMICTAL [Suspect]
     Indication: DEPRESSION
     Dosage: 25 MG DAILY, 50 MG DAILY, 75 MG DAILY, 100 MG DAILY, 150 MG DAILY, 200 MG DAILY, 250 MG DAILY, 50 MG
     Dates: start: 20110814, end: 20110827
  11. LAMICTAL [Suspect]
     Indication: DEPRESSION
     Dosage: 25 MG DAILY, 50 MG DAILY, 75 MG DAILY, 100 MG DAILY, 150 MG DAILY, 200 MG DAILY, 250 MG DAILY, 50 MG
     Dates: start: 20110101, end: 20110101
  12. ATENOLOL [Concomitant]
  13. WELLBUTRIN [Suspect]
     Indication: DEPRESSION
     Dosage: 150 MG DAILY, 300 MG DAILY, 150 MG DAILY
     Dates: start: 20110828, end: 20110829
  14. WELLBUTRIN [Suspect]
     Indication: DEPRESSION
     Dosage: 150 MG DAILY, 300 MG DAILY, 150 MG DAILY
     Dates: start: 20110830, end: 20111101
  15. WELLBUTRIN [Suspect]
     Indication: DEPRESSION
     Dosage: 150 MG DAILY, 300 MG DAILY, 150 MG DAILY
     Dates: start: 20110814, end: 20110827

REACTIONS (7)
  - SLEEP DISORDER [None]
  - DRY MOUTH [None]
  - FLUSHING [None]
  - MANIA [None]
  - PSYCHOTIC DISORDER [None]
  - HYPOMANIA [None]
  - HYPERHIDROSIS [None]
